FAERS Safety Report 6400140-1 (Version None)
Quarter: 2009Q4

REPORT INFORMATION
  Report Type: 
  Country: None (occurrence: None)
  Receive Date: 20091014
  Receipt Date: 20091001
  Transmission Date: 20100525
  Serious: Yes (Other)
  Sender: FDA-Public Use
  Company Number: GB-PFIZER INC-2009244567

PATIENT
  Age: 49 Year

DRUGS (4)
  1. NEURONTIN [Suspect]
     Indication: NEURALGIA
     Dosage: 100 MG, 3X/DAY
     Route: 048
     Dates: start: 20090716
  2. NEURONTIN [Suspect]
     Indication: INTERVERTEBRAL DISC PROTRUSION
  3. NEURONTIN [Suspect]
  4. IBUPROFEN [Concomitant]
     Dosage: 600 MG, 3X/DAY
     Route: 048
     Dates: start: 20090716

REACTIONS (8)
  - ABNORMAL SENSATION IN EYE [None]
  - AGITATION [None]
  - DRUG INEFFECTIVE [None]
  - MUSCLE TWITCHING [None]
  - SLEEP DISORDER [None]
  - SPEECH DISORDER [None]
  - THIRST [None]
  - TREMOR [None]
